FAERS Safety Report 9482754 (Version 1)
Quarter: 2013Q3

REPORT INFORMATION
  Report Type: Spontaneous
  Country: US (occurrence: US)
  Receive Date: 20130828
  Receipt Date: 20130828
  Transmission Date: 20140515
  Serious: Yes (Other)
  Sender: FDA-Public Use
  Company Number: US-PFIZER INC-2013243749

PATIENT
  Age: 78 Year
  Sex: Female
  Weight: 73.47 kg

DRUGS (5)
  1. TOVIAZ [Suspect]
     Indication: HYPERTONIC BLADDER
     Dosage: 08 MG, 1X/DAY AT NIGHT
  2. LYRICA [Interacting]
     Indication: NEUROPATHY PERIPHERAL
     Dosage: 75 MG, 1X/DAY
     Route: 048
  3. LYRICA [Interacting]
     Indication: FIBROMYALGIA
     Dosage: 150 MG, 1X/DAY
     Dates: start: 20130701
  4. CYANOCOBALAMIN [Interacting]
     Dosage: 1000 MG, 1X/DAY
     Dates: start: 2013
  5. CELEBREX [Concomitant]
     Indication: ARTHRITIS
     Dosage: 200 MG, 1X/DAY

REACTIONS (3)
  - Arthropathy [Unknown]
  - Drug interaction [Unknown]
  - Drug ineffective [Unknown]
